FAERS Safety Report 6775815-5 (Version None)
Quarter: 2010Q2

REPORT INFORMATION
  Report Type: 
  Country: None (occurrence: None)
  Receive Date: 20100615
  Receipt Date: 20100602
  Transmission Date: 20101027
  Serious: Yes (Hospitalization, Other)
  Sender: FDA-Public Use
  Company Number: 2009S1003970

PATIENT
  Age: 70 Year
  Sex: Male

DRUGS (12)
  1. PHOSPHOSODA FLAVOR NOT SPECIFIED [Suspect]
     Indication: COLONOSCOPY
     Dosage: PO
     Route: 048
     Dates: start: 20061218
  2. LISINOPRIL AND HYDROCHLOROTHIAZIDE [Concomitant]
  3. METOPROLOL TARTRATE [Concomitant]
  4. PRAVACHOL [Concomitant]
  5. AMANTADINE HCL [Concomitant]
  6. SELEGILINE [Concomitant]
  7. SINEMET [Concomitant]
  8. FUROSEMIDE [Concomitant]
  9. POTASSIUM CHLORIDE [Concomitant]
  10. ASPIRIN [Concomitant]
  11. VIITAMIN E [Concomitant]
  12. LAXATIVES [Concomitant]

REACTIONS (10)
  - ASTHENIA [None]
  - CONFUSIONAL STATE [None]
  - HAEMATURIA [None]
  - HYPOPHAGIA [None]
  - HYPOTENSION [None]
  - PROTEINURIA [None]
  - RENAL FAILURE ACUTE [None]
  - RENAL TUBULAR NECROSIS [None]
  - URINARY TRACT INFECTION [None]
  - UROSEPSIS [None]
